FAERS Safety Report 11170094 (Version 1)
Quarter: 2015Q2

REPORT INFORMATION
  Report Type: Spontaneous
  Country: HU (occurrence: HU)
  Receive Date: 20150608
  Receipt Date: 20150608
  Transmission Date: 20150821
  Serious: Yes (Other)
  Sender: FDA-Public Use
  Company Number: HU-AMGEN-HUNSP2015054706

PATIENT
  Age: 68 Year
  Sex: Female
  Weight: 55 kg

DRUGS (4)
  1. ENBREL [Suspect]
     Active Substance: ETANERCEPT
     Indication: RHEUMATOID ARTHRITIS
     Dosage: 1X WEEKLY
     Route: 058
  2. BETALOC                            /00376903/ [Concomitant]
     Indication: ARRHYTHMIA
     Dosage: 50 MG, 1X1
     Dates: start: 2000
  3. MEDROL [Concomitant]
     Active Substance: METHYLPREDNISOLONE
     Dosage: 4 MG, 2X1
     Dates: start: 1997
  4. ARAVA [Concomitant]
     Active Substance: LEFLUNOMIDE
     Indication: RHEUMATIC DISORDER
     Dosage: 10 MG, 1X1

REACTIONS (6)
  - Eye disorder [Unknown]
  - Ocular hyperaemia [Unknown]
  - Dry eye [Unknown]
  - Bronchitis [Unknown]
  - Eye pain [Unknown]
  - Pneumonia [Unknown]
